FAERS Safety Report 7023329-X (Version None)
Quarter: 2010Q3

REPORT INFORMATION
  Report Type: 
  Country: None (occurrence: None)
  Receive Date: 20100916
  Receipt Date: 20100629
  Transmission Date: 20110219
  Serious: No
  Sender: FDA-Public Use
  Company Number: DKLU1063249

PATIENT
  Sex: Female

DRUGS (4)
  1. SABRIL [Suspect]
     Indication: CONVULSION
     Dosage: 1000 MG MILLIGRAM(S), 2 IN 1 D
     Dates: start: 20091201
  2. KEPPRA [Concomitant]
  3. TRILEPTAL [Concomitant]
  4. LAMICTAL [Concomitant]

REACTIONS (4)
  - DEHYDRATION [None]
  - FATIGUE [None]
  - NAUSEA [None]
  - THIRST [None]
